FAERS Safety Report 10215927 (Version 1)
Quarter: 2014Q2

REPORT INFORMATION
  Report Type: Spontaneous
  Country: US (occurrence: None)
  Receive Date: 20140603
  Receipt Date: 20140603
  Transmission Date: 20141212
  Serious: Yes (Hospitalization)
  Sender: FDA-Public Use
  Company Number: None

PATIENT
  Age: 85 Year
  Sex: Female

DRUGS (5)
  1. TASIGNA [Suspect]
     Route: 048
     Dates: start: 20110106
  2. MECLIZINE [Concomitant]
  3. ZYRTEC [Concomitant]
  4. DIGOXIN [Concomitant]
  5. PRODAXA [Concomitant]

REACTIONS (4)
  - Fall [None]
  - Rotator cuff syndrome [None]
  - Muscle disorder [None]
  - Visual impairment [None]
